FAERS Safety Report 9352362 (Version 1)
Quarter: 2013Q2

REPORT INFORMATION
  Report Type: Spontaneous
  Country: JP (occurrence: JP)
  Receive Date: 20130617
  Receipt Date: 20130617
  Transmission Date: 20140414
  Serious: Yes (Hospitalization, Other)
  Sender: FDA-Public Use
  Company Number: JP-UCBSA-088918

PATIENT
  Age: 46 Year
  Sex: Male

DRUGS (8)
  1. XYZAL [Suspect]
     Dosage: UNKNOWN DOSE
     Route: 048
  2. LAMICTAL [Suspect]
     Indication: EPILEPSY
     Dosage: UNKNOWN DOSE
     Route: 048
     Dates: start: 20130217, end: 20130302
  3. HALCION [Concomitant]
     Dosage: UNKNOWN DOSE
     Route: 048
  4. TRAMCET [Concomitant]
     Dosage: UNKNOWN DOSE
     Route: 048
  5. NESINA [Concomitant]
     Dosage: UNKNOWN DOSE
     Route: 048
  6. REFLEX [Concomitant]
     Dosage: UNKNOWN DOSE
     Route: 048
  7. GABAPEN [Concomitant]
     Dosage: UNKNOWN DOSE
  8. RIVOTRIL [Concomitant]
     Dosage: UNKNOWN DOSE

REACTIONS (1)
  - Stevens-Johnson syndrome [Recovered/Resolved]
